FAERS Safety Report 9730531 (Version 1)
Quarter: 2013Q4

REPORT INFORMATION
  Report Type: Spontaneous
  Country: US (occurrence: US)
  Receive Date: 20131202
  Receipt Date: 20131202
  Transmission Date: 20140711
  Serious: Yes (Other)
  Sender: FDA-Public Use
  Company Number: US-AMGEN-USASP2013080039

PATIENT
  Sex: 0

DRUGS (5)
  1. ENBREL [Suspect]
     Indication: RHEUMATOID ARTHRITIS
     Dosage: UNK, 2 TIMES/WK
     Route: 065
  2. ENBREL [Suspect]
     Indication: FIBROMYALGIA
  3. PLAQUENIL                          /00072602/ [Concomitant]
     Dosage: UNK
  4. CELEBREX [Concomitant]
     Dosage: UNK
  5. IBUPROFEN [Concomitant]
     Dosage: UNK

REACTIONS (8)
  - Lung infection [Unknown]
  - Chronic obstructive pulmonary disease [Unknown]
  - Immune system disorder [Unknown]
  - Depression [Unknown]
  - Anxiety [Unknown]
  - Pain [Unknown]
  - General physical health deterioration [Unknown]
  - Sinusitis [Unknown]
